FAERS Safety Report 21412815 (Version 1)
Quarter: 2022Q4

REPORT INFORMATION
  Report Type: Spontaneous
  Country: US (occurrence: None)
  Receive Date: 20221004
  Receipt Date: 20221004
  Transmission Date: 20230113
  Serious: Yes (Hospitalization)
  Sender: FDA-Public Use
  Company Number: None

PATIENT
  Age: 54 Year
  Sex: Female

DRUGS (1)
  1. CAPECITABINE [Suspect]
     Active Substance: CAPECITABINE
     Dosage: FREQUENCY : DAILY;?
     Route: 048

REACTIONS (11)
  - Diarrhoea [None]
  - Pericardial effusion [None]
  - Fall [None]
  - Head injury [None]
  - Tooth loss [None]
  - Rib fracture [None]
  - Pain [None]
  - Fatigue [None]
  - Myalgia [None]
  - Bone pain [None]
  - Constipation [None]

NARRATIVE: CASE EVENT DATE: 20221004
